FAERS Safety Report 9880343 (Version 1)
Quarter: 2014Q1

REPORT INFORMATION
  Report Type: Spontaneous
  Country: US (occurrence: None)
  Receive Date: 20140206
  Receipt Date: 20140206
  Transmission Date: 20141002
  Serious: No
  Sender: FDA-Public Use
  Company Number: None

PATIENT
  Age: 69 Year
  Sex: Male
  Weight: 104.33 kg

DRUGS (4)
  1. CLONAZEPAM 1MG [Suspect]
     Indication: PARKINSON^S DISEASE
     Dosage: 1 TABLET AT BEDTIME TAKEN BY MOUTH
     Route: 048
     Dates: start: 20140106
  2. CLONAZEPAM 1MG [Suspect]
     Indication: NOCTURIA
     Dosage: 1 TABLET AT BEDTIME TAKEN BY MOUTH
     Route: 048
     Dates: start: 20140106
  3. CLONAZEPAM 0.5MG [Suspect]
     Indication: PARKINSON^S DISEASE
     Dosage: 1 TO 2 TABLETS AT BEDTIME TAKEN BY MOUTH
     Route: 048
     Dates: start: 20140107
  4. CLONAZEPAM 0.5MG [Suspect]
     Indication: NOCTURIA
     Dosage: 1 TO 2 TABLETS AT BEDTIME TAKEN BY MOUTH
     Route: 048
     Dates: start: 20140107

REACTIONS (3)
  - Product quality issue [None]
  - Product substitution issue [None]
  - Drug ineffective [None]
